FAERS Safety Report 8180733-4 (Version None)
Quarter: 2012Q1

REPORT INFORMATION
  Report Type: 
  Country: None (occurrence: None)
  Receive Date: 20120302
  Receipt Date: 20120228
  Transmission Date: 20120608
  Serious: Yes (Death)
  Sender: FDA-Public Use
  Company Number: US-JNJFOC-20040604262

PATIENT
  Age: 13 Week
  Sex: Male

DRUGS (4)
  1. CHILDREN'S TYLENOL SUSPENSION [Suspect]
     Indication: MALAISE
     Route: 065
     Dates: start: 20030523, end: 20030523
  2. BENADRYL [Suspect]
     Route: 065
  3. CHILDREN'S TYLENOL SUSPENSION [Suspect]
     Route: 065
  4. BENADRYL [Suspect]
     Indication: PRODUCT USED FOR UNKNOWN INDICATION
     Route: 065

REACTIONS (1)
  - DEATH [None]
